FAERS Safety Report 19247718 (Version 5)
Quarter: 2021Q3

REPORT INFORMATION
  Report Type: Spontaneous
  Country: CO (occurrence: CO)
  Receive Date: 20210512
  Receipt Date: 20210914
  Transmission Date: 20211014
  Serious: Yes (Other)
  Sender: FDA-Public Use
  Company Number: CO-PFIZER INC-2021328822

PATIENT
  Age: 61 Year
  Sex: Female

DRUGS (1)
  1. REAMPLA [Suspect]
     Active Substance: PALBOCICLIB
     Dosage: 125 MG, DAILY (FOR 30 DAYS)
     Route: 048
     Dates: start: 20210312, end: 202104

REACTIONS (4)
  - Colon cancer [Unknown]
  - Off label use [Unknown]
  - Peripheral venous disease [Unknown]
  - Second primary malignancy [Unknown]

NARRATIVE: CASE EVENT DATE: 202108
